FAERS Safety Report 9812094 (Version 1)
Quarter: 2014Q1

REPORT INFORMATION
  Report Type: Spontaneous
  Country: US (occurrence: US)
  Receive Date: 20140111
  Receipt Date: 20140111
  Transmission Date: 20141002
  Serious: Yes (Other)
  Sender: FDA-Public Use
  Company Number: US-JNJFOC-20131217550

PATIENT
  Age: 36 Year
  Sex: 0

DRUGS (3)
  1. TYLENOL UNSPECIFIED [Suspect]
     Indication: NECK PAIN
     Dosage: DAILY
     Route: 065
  2. TYLENOL UNSPECIFIED [Suspect]
     Indication: BACK PAIN
     Dosage: DAILY
     Route: 065
  3. TYLENOL UNSPECIFIED [Suspect]
     Indication: HYPERSENSITIVITY
     Dosage: DAILY
     Route: 065

REACTIONS (2)
  - Hepatic steatosis [Unknown]
  - Intentional drug misuse [Unknown]
